FAERS Safety Report 16598265 (Version 5)
Quarter: 2023Q2

REPORT INFORMATION
  Report Type: Report from Study
  Country: JP (occurrence: JP)
  Receive Date: 20190719
  Receipt Date: 20230404
  Transmission Date: 20230721
  Serious: Yes (Hospitalization, Other)
  Sender: FDA-Public Use
  Company Number: JP-ASTELLAS-2019JP008824

PATIENT
  Age: 13 Year
  Sex: Male

DRUGS (25)
  1. GILTERITINIB [Suspect]
     Active Substance: GILTERITINIB
     Indication: Acute myeloid leukaemia recurrent
     Dosage: 80 MG/DAY, UNKNOWN FREQ.
     Route: 048
     Dates: start: 20181217, end: 20190113
  2. GILTERITINIB [Suspect]
     Active Substance: GILTERITINIB
     Indication: Acute myeloid leukaemia refractory
     Route: 048
     Dates: start: 20190121, end: 20190217
  3. GILTERITINIB [Suspect]
     Active Substance: GILTERITINIB
     Route: 048
     Dates: start: 20190225, end: 20190331
  4. CYTARABINE [Suspect]
     Active Substance: CYTARABINE
     Indication: Acute myeloid leukaemia refractory
     Route: 042
     Dates: start: 20181211, end: 20181213
  5. CYTARABINE [Suspect]
     Active Substance: CYTARABINE
     Route: 042
     Dates: start: 20190115, end: 20190119
  6. CYTARABINE [Suspect]
     Active Substance: CYTARABINE
     Route: 042
     Dates: start: 20190218, end: 20190220
  7. VEPESID [Suspect]
     Active Substance: ETOPOSIDE
     Indication: Acute myeloid leukaemia refractory
     Dosage: 150 MG/DAY, UNKNOWN FREQ.
     Route: 042
     Dates: start: 20181211, end: 20181215
  8. VEPESID [Suspect]
     Active Substance: ETOPOSIDE
     Dosage: 150 MG/DAY, UNKNOWN FREQ.
     Route: 042
     Dates: start: 20190218, end: 20190222
  9. IDAMYCIN [Suspect]
     Active Substance: IDARUBICIN HYDROCHLORIDE
     Indication: Acute myeloid leukaemia refractory
     Dosage: 15 MG/DAY, UNKNOWN FREQ.
     Route: 042
     Dates: start: 20181211, end: 20181211
  10. IDAMYCIN [Suspect]
     Active Substance: IDARUBICIN HYDROCHLORIDE
     Dosage: 15 MG/DAY, UNKNOWN FREQ.
     Route: 042
     Dates: start: 20190218, end: 20190218
  11. MITOXANTRONE [Suspect]
     Active Substance: MITOXANTRONE HYDROCHLORIDE
     Indication: Acute myeloid leukaemia refractory
     Dosage: 7.5 MG/DAY, UNKNOWN FREQ.
     Route: 042
     Dates: start: 20190115, end: 20190117
  12. SULFAMETHOXAZOLE\TRIMETHOPRIM [Concomitant]
     Active Substance: SULFAMETHOXAZOLE\TRIMETHOPRIM
     Indication: Prophylaxis
     Dosage: 4 DF/DAY, UNKNOWN FREQ.
     Route: 048
  13. DIETARY SUPPLEMENT\UBIDECARENONE [Concomitant]
     Active Substance: DIETARY SUPPLEMENT\UBIDECARENONE
     Indication: Prophylaxis
     Dosage: 30 MG/DAY, UNKNOWN FREQ.
     Route: 048
     Dates: end: 20190402
  14. MICAFUNGIN SODIUM [Concomitant]
     Active Substance: MICAFUNGIN SODIUM
     Indication: Prophylaxis
     Dosage: 150 MG/DAY, UNKNOWN FREQ.
     Route: 065
     Dates: end: 20190102
  15. MAXIPIME [Concomitant]
     Active Substance: CEFEPIME HYDROCHLORIDE
     Indication: Prophylaxis
     Dosage: 2 G/DAY, UNKNOWN FREQ.
     Route: 065
     Dates: end: 20181223
  16. FLUCONAZOLE [Concomitant]
     Active Substance: FLUCONAZOLE
     Indication: Prophylaxis
     Dosage: 200 MG/DAY, UNKNOWN FREQ.
     Route: 048
  17. POLYMYXIN B SULFATE [Concomitant]
     Active Substance: POLYMYXIN B SULFATE
     Indication: Product used for unknown indication
     Dosage: 3000000 DF/DAY, UNKNOWN FREQ.
     Route: 048
     Dates: end: 20190107
  18. Minophagen c [Concomitant]
     Indication: Aspartate aminotransferase abnormal
     Dosage: 40 ML/DAY, UNKNOWN FREQ.
     Route: 065
     Dates: start: 20181221, end: 20190102
  19. Minophagen c [Concomitant]
     Indication: Alanine aminotransferase abnormal
  20. MINOCYCLINE HYDROCHLORIDE [Concomitant]
     Active Substance: MINOCYCLINE HYDROCHLORIDE
     Indication: Sepsis
     Dosage: UNK UNK, UNKNOWN FREQ.
     Route: 065
  21. TEICOPLANIN [Concomitant]
     Active Substance: TEICOPLANIN
     Indication: Sepsis
     Dosage: UNK UNK, UNKNOWN FREQ.
     Route: 065
  22. TEICOPLANIN [Concomitant]
     Active Substance: TEICOPLANIN
     Dosage: UNK UNK, UNKNOWN FREQ.
     Route: 065
  23. BETAMIPRON\PANIPENEM [Concomitant]
     Active Substance: BETAMIPRON\PANIPENEM
     Indication: Sepsis
     Dosage: UNK UNK, UNKNOWN FREQ.
     Route: 065
  24. CUBICIN [Concomitant]
     Active Substance: DAPTOMYCIN
     Indication: Sepsis
     Dosage: UNK UNK, UNKNOWN FREQ.
     Route: 065
  25. DIFLUCAN [Concomitant]
     Active Substance: FLUCONAZOLE
     Indication: Product used for unknown indication
     Dosage: UNK UNK, UNKNOWN FREQ.
     Route: 065

REACTIONS (10)
  - Aspartate aminotransferase abnormal [Recovering/Resolving]
  - Alanine aminotransferase abnormal [Recovering/Resolving]
  - Myelosuppression [Recovered/Resolved]
  - Sepsis [Recovered/Resolved]
  - Myelosuppression [Recovered/Resolved]
  - Myelosuppression [Recovered/Resolved]
  - Sepsis [Recovered/Resolved]
  - Herpes zoster [Recovered/Resolved]
  - Off label use [Unknown]
  - Product administered to patient of inappropriate age [Unknown]

NARRATIVE: CASE EVENT DATE: 20181215
